FAERS Safety Report 24563968 (Version 1)
Quarter: 2024Q4

REPORT INFORMATION
  Report Type: Spontaneous
  Country: GB (occurrence: GB)
  Receive Date: 20241030
  Receipt Date: 20241030
  Transmission Date: 20250114
  Serious: Yes (Other)
  Sender: TEVA
  Company Number: None

PATIENT
  Age: 53 Year
  Sex: Female
  Weight: 76 kg

DRUGS (1)
  1. ALENDRONIC ACID [Suspect]
     Active Substance: ALENDRONIC ACID
     Indication: Adverse drug reaction
     Dosage: 70MG ONCE A WEEK
     Route: 065
     Dates: start: 20241012

REACTIONS (12)
  - Cardiac flutter [Recovering/Resolving]
  - Constipation [Not Recovered/Not Resolved]
  - Back pain [Recovering/Resolving]
  - Dyspepsia [Recovered/Resolved]
  - Dizziness [Recovering/Resolving]
  - Dizziness [Recovered/Resolved]
  - Headache [Recovering/Resolving]
  - Influenza like illness [Recovering/Resolving]
  - Ear pain [Recovering/Resolving]
  - Fatigue [Recovering/Resolving]
  - Eructation [Recovered/Resolved]
  - Paraesthesia [Recovering/Resolving]
